FAERS Safety Report 18738558 (Version 3)
Quarter: 2021Q2

REPORT INFORMATION
  Report Type: Spontaneous
  Country: US (occurrence: US)
  Receive Date: 20210114
  Receipt Date: 20210429
  Transmission Date: 20210717
  Serious: Yes (Hospitalization)
  Sender: FDA-Public Use
  Company Number: US-TEVA-2021-US-1867341

PATIENT
  Age: 22 Year
  Sex: Female

DRUGS (1)
  1. SULFASALAZINE. [Suspect]
     Active Substance: SULFASALAZINE
     Indication: COLITIS ULCERATIVE
     Dosage: 4 GRAM DAILY;
     Route: 065

REACTIONS (2)
  - Toxicity to various agents [Recovering/Resolving]
  - Pulmonary toxicity [Recovering/Resolving]
